FAERS Safety Report 7552525-8 (Version None)
Quarter: 2011Q2

REPORT INFORMATION
  Report Type: 
  Country: None (occurrence: None)
  Receive Date: 20110616
  Receipt Date: 20110603
  Transmission Date: 20111010
  Serious: Yes (Hospitalization)
  Sender: FDA-Public Use
  Company Number: US-ELI_LILLY_AND_COMPANY-US201105004138

PATIENT
  Sex: Female

DRUGS (1)
  1. FORTEO [Suspect]
     Dosage: 20 UG, QD
     Route: 065
     Dates: start: 20110513

REACTIONS (7)
  - ABDOMINAL PAIN [None]
  - LIVER DISORDER [None]
  - ASTHENIA [None]
  - FALL [None]
  - MUSCULAR WEAKNESS [None]
  - BACK PAIN [None]
  - HYPOAESTHESIA [None]
